FAERS Safety Report 5139827-X (Version None)
Quarter: 2006Q4

REPORT INFORMATION
  Report Type: 
  Country: None (occurrence: None)
  Receive Date: 20061026
  Receipt Date: 20061026
  Transmission Date: 20070319
  Serious: Yes (Hospitalization)
  Sender: FDA-Public Use
  Company Number: None

PATIENT
  Sex: Female
  Weight: 58.45 kg

DRUGS (3)
  1. FLUOROURACIL [Suspect]
     Dosage: 4704 MG
  2. LEUCOVORIN CALCIUM [Suspect]
     Dosage: 672 MG
  3. ELOXATIN [Suspect]
     Dosage: 142 MG

REACTIONS (3)
  - FALL [None]
  - HIP FRACTURE [None]
  - JOINT DISLOCATION [None]
